FAERS Safety Report 19866519 (Version 1)
Quarter: 2021Q3

REPORT INFORMATION
  Report Type: Report from Study
  Country: US (occurrence: US)
  Receive Date: 20210921
  Receipt Date: 20210921
  Transmission Date: 20211014
  Serious: Yes (Hospitalization, Other)
  Sender: FDA-Public Use
  Company Number: NVSC2021US206759

PATIENT
  Age: 6 Month
  Sex: Female
  Weight: 5.76 kg

DRUGS (7)
  1. PREDNISOLONE. [Concomitant]
     Active Substance: PREDNISOLONE
     Indication: PRODUCT USED FOR UNKNOWN INDICATION
     Dosage: UNK
     Route: 065
  2. ISOPTO ATROPINE [Concomitant]
     Active Substance: ATROPINE SULFATE
     Indication: PRODUCT USED FOR UNKNOWN INDICATION
     Dosage: 1/2 DROPS, BID
     Route: 065
     Dates: start: 20210823
  3. ZOLGENSMA [Suspect]
     Active Substance: ONASEMNOGENE ABEPARVOVEC-XIOI
     Indication: SPINAL MUSCULAR ATROPHY
     Dosage: 33 ML
     Route: 042
     Dates: start: 20210819, end: 20210819
  4. OMEPRAZOLE. [Concomitant]
     Active Substance: OMEPRAZOLE
     Indication: PRODUCT USED FOR UNKNOWN INDICATION
     Dosage: 2.5 ML, BID
     Route: 048
     Dates: start: 20210825
  5. POLY?VI?SOL WITH IRON [Concomitant]
     Active Substance: IRON\VITAMINS
     Indication: PRODUCT USED FOR UNKNOWN INDICATION
     Dosage: 1 ML, QD
     Route: 065
     Dates: start: 20210809
  6. ERYTHROMYCIN ETHYL SUCCINATE [Concomitant]
     Active Substance: ERYTHROMYCIN ETHYLSUCCINATE
     Indication: GASTROINTESTINAL DISORDER
     Dosage: 0.95 ML, TID
     Route: 048
     Dates: start: 20210909
  7. PREDNISOLONE SODIUM PHOSPHATE. [Concomitant]
     Active Substance: PREDNISOLONE SODIUM PHOSPHATE
     Indication: PRODUCT USED FOR UNKNOWN INDICATION
     Dosage: 1.8 ML, QD
     Route: 048
     Dates: start: 20210818

REACTIONS (7)
  - Increased upper airway secretion [Recovering/Resolving]
  - Respiratory distress [Recovering/Resolving]
  - Pneumonia aspiration [Recovering/Resolving]
  - Failure to thrive [Recovering/Resolving]
  - Blood pressure increased [Recovered/Resolved]
  - Feeding intolerance [Recovering/Resolving]
  - Bradycardia [Recovered/Resolved]

NARRATIVE: CASE EVENT DATE: 20210826
